FAERS Safety Report 5465722-2 (Version None)
Quarter: 2007Q3

REPORT INFORMATION
  Report Type: 
  Country: None (occurrence: None)
  Receive Date: 20070919
  Receipt Date: 20070919
  Transmission Date: 20080115
  Serious: No
  Sender: FDA-Public Use
  Company Number: None

PATIENT
  Sex: Male
  Weight: 75 kg

DRUGS (1)
  1. CLOZAPINE [Suspect]
     Indication: SCHIZOPHRENIA
     Dosage: 300MG TWICE A DAY PO
     Route: 048
     Dates: start: 20070807, end: 20070918

REACTIONS (2)
  - PHARMACEUTICAL PRODUCT COMPLAINT [None]
  - SCHIZOPHRENIA [None]
